FAERS Safety Report 8010941-4 (Version None)
Quarter: 2011Q4

REPORT INFORMATION
  Report Type: 
  Country: None (occurrence: None)
  Receive Date: 20111228
  Receipt Date: 20111220
  Transmission Date: 20120403
  Serious: Yes (Other)
  Sender: FDA-Public Use
  Company Number: IT-ROCHE-1025038

PATIENT
  Sex: Female

DRUGS (3)
  1. CLARITIN [Suspect]
     Indication: PRODUCT USED FOR UNKNOWN INDICATION
     Dates: start: 20111013, end: 20111013
  2. LIORESAL [Suspect]
     Indication: PRODUCT USED FOR UNKNOWN INDICATION
     Dates: start: 20111013, end: 20111013
  3. TORADOL [Suspect]
     Indication: PRODUCT USED FOR UNKNOWN INDICATION
     Dates: start: 20111013, end: 20111013

REACTIONS (2)
  - SOPOR [None]
  - CONFUSIONAL STATE [None]
